FAERS Safety Report 15930130 (Version 1)
Quarter: 2019Q1

REPORT INFORMATION
  Report Type: Report from Study
  Country: US (occurrence: US)
  Receive Date: 20190206
  Receipt Date: 20190206
  Transmission Date: 20190417
  Serious: Yes (Other)
  Sender: FDA-Public Use
  Company Number: US-GILEAD-2019-0389381

PATIENT
  Age: 63 Year
  Sex: Female

DRUGS (2)
  1. RANOLAZINE. [Suspect]
     Active Substance: RANOLAZINE
     Indication: ANGINA PECTORIS
     Dosage: 500 MG, BID
     Route: 048
  2. RANOLAZINE. [Suspect]
     Active Substance: RANOLAZINE
     Dosage: HALF OF DOSAGE
     Route: 048
     Dates: start: 20190109

REACTIONS (4)
  - Hemiparesis [Not Recovered/Not Resolved]
  - Intentional product use issue [Not Recovered/Not Resolved]
  - Speech disorder [Not Recovered/Not Resolved]
  - Cerebrovascular accident [Unknown]

NARRATIVE: CASE EVENT DATE: 201901
